FAERS Safety Report 24035270 (Version 1)
Quarter: 2024Q3

REPORT INFORMATION
  Report Type: Spontaneous
  Country: DE (occurrence: DE)
  Receive Date: 20240701
  Receipt Date: 20240701
  Transmission Date: 20241016
  Serious: Yes (Congenital Anomaly, Other)
  Sender: JOHNSON AND JOHNSON
  Company Number: DE-JNJFOC-20240676725

PATIENT
  Sex: Male
  Weight: 3.94 kg

DRUGS (5)
  1. IMODIUM [Suspect]
     Active Substance: LOPERAMIDE HYDROCHLORIDE
     Indication: Food poisoning
     Dosage: 6 [MG/D ]/ 2-6 MG/D
     Route: 064
  2. YELLOW FEVER VACCINE NOS [Suspect]
     Active Substance: YELLOW FEVER VIRUS STRAIN 17D-204 LIVE ANTIGEN
     Indication: Immunisation
     Route: 064
  3. PERTUSSIS VACCINE [Concomitant]
     Active Substance: PERTUSSIS VACCINE
     Indication: Immunisation
     Route: 064
  4. FOLIC ACID [Concomitant]
     Active Substance: FOLIC ACID
     Indication: Prophylaxis of neural tube defect
     Route: 064
     Dates: start: 20221230, end: 20231008
  5. LEVOTHYROXINE SODIUM [Concomitant]
     Active Substance: LEVOTHYROXINE SODIUM
     Indication: Autoimmune thyroiditis
     Dosage: 100 [UG/D ]
     Route: 064
     Dates: start: 20221230, end: 20231008

REACTIONS (3)
  - Urosepsis [Unknown]
  - Congenital vesicoureteric reflux [Not Recovered/Not Resolved]
  - Foetal exposure during pregnancy [Unknown]
